FAERS Safety Report 7668206 (Version 6)
Quarter: 2013Q4

REPORT INFORMATION
  Report Type: Spontaneous
  Country: CA (occurrence: CA)
  Receive Date: 20101115
  Receipt Date: 20131031
  Transmission Date: 20140711
  Serious: Yes (Death, Other)
  Sender: FDA-Public Use
  Company Number: CA-NAPPMUNDI-CAN-2010-0001587

PATIENT
  Age: 41 Year
  Sex: Female

DRUGS (16)
  1. OXYCONTIN TABLETS [Suspect]
     Indication: BACK PAIN
     Dosage: 120 MG, UNK
     Route: 065
     Dates: start: 2007
  2. OXYCONTIN TABLETS [Suspect]
     Dosage: 520 MG, DAILY
     Dates: start: 2008
  3. OXYCONTIN TABLETS [Suspect]
     Dosage: 700 MG, DAILY
     Dates: start: 200807
  4. OXYCONTIN TABLETS [Suspect]
     Dosage: 960 MG, DAILY
     Dates: start: 200809
  5. OXYCONTIN TABLETS [Suspect]
     Dosage: 1440 MG, DAILY
  6. PERCOCET /00446701/ [Suspect]
     Indication: BACK PAIN
     Route: 065
  7. PERCOCET /00446701/ [Suspect]
     Indication: PRODUCT USED FOR UNKNOWN INDICATION
  8. PAROXETINE [Suspect]
     Indication: PRODUCT USED FOR UNKNOWN INDICATION
     Dosage: UNK
     Route: 065
  9. VENLAFAXINE [Suspect]
     Indication: PRODUCT USED FOR UNKNOWN INDICATION
     Dosage: UNK
     Route: 065
  10. ANXIOLYTICS [Suspect]
     Indication: PRODUCT USED FOR UNKNOWN INDICATION
  11. ANXIOLYTICS [Suspect]
     Indication: ANXIETY
  12. ANTIDEPRESSANTS [Suspect]
     Indication: PRODUCT USED FOR UNKNOWN INDICATION
  13. ANTIDEPRESSANTS [Suspect]
     Indication: DEPRESSION
  14. COCAINE [Suspect]
     Indication: PRODUCT USED FOR UNKNOWN INDICATION
     Dosage: UNK
  15. ALCOHOL [Suspect]
     Indication: PRODUCT USED FOR UNKNOWN INDICATION
     Dosage: UNK
  16. MARIJUANA [Suspect]
     Indication: PRODUCT USED FOR UNKNOWN INDICATION
     Route: 055

REACTIONS (5)
  - Intentional overdose [Fatal]
  - Drug dependence [Unknown]
  - Substance abuse [Unknown]
  - Cyanosis [Unknown]
  - Drug diversion [Unknown]
